FAERS Safety Report 15617177 (Version 2)
Quarter: 2021Q3

REPORT INFORMATION
  Report Type: Report from Study
  Country: GB (occurrence: GB)
  Receive Date: 20181114
  Receipt Date: 20210817
  Transmission Date: 20211014
  Serious: Yes (Other)
  Sender: FDA-Public Use
  Company Number: GB-ELI_LILLY_AND_COMPANY-GB201811005623

PATIENT

DRUGS (3)
  1. GANETESPIB [Concomitant]
     Active Substance: GANETESPIB
     Indication: PLEURAL MESOTHELIOMA MALIGNANT
     Dosage: 200 MG/M2, OTHER
     Route: 065
  2. CISPLATIN. [Concomitant]
     Active Substance: CISPLATIN
     Indication: PLEURAL MESOTHELIOMA MALIGNANT
     Dosage: 75 MG/M2, CYCLICAL
     Route: 065
  3. PEMETREXED. [Suspect]
     Active Substance: PEMETREXED
     Indication: PLEURAL MESOTHELIOMA MALIGNANT
     Dosage: 500 MG/M2, CYCLICAL
     Route: 065

REACTIONS (1)
  - Infusion related reaction [Unknown]
